FAERS Safety Report 9254618 (Version 1)
Quarter: 2013Q2

REPORT INFORMATION
  Report Type: Spontaneous
  Country: GB (occurrence: GB)
  Receive Date: 20130425
  Receipt Date: 20130425
  Transmission Date: 20140414
  Serious: Yes (Other)
  Sender: FDA-Public Use
  Company Number: GB-PFIZER INC-2013126457

PATIENT
  Age: 43 Year
  Sex: Female
  Weight: 67.12 kg

DRUGS (2)
  1. SERTRALINE HCL [Suspect]
     Indication: ANXIETY
     Dosage: 50 MG, 1X/DAY
     Route: 048
     Dates: start: 20121207, end: 20130412
  2. SERTRALINE HCL [Suspect]
     Dosage: UNK
     Route: 048
     Dates: start: 201304

REACTIONS (4)
  - Sweat gland disorder [Not Recovered/Not Resolved]
  - Insomnia [Not Recovered/Not Resolved]
  - Dehydration [Not Recovered/Not Resolved]
  - Fatigue [Unknown]
